FAERS Safety Report 8923599 (Version 1)
Quarter: 2012Q4

REPORT INFORMATION
  Report Type: Spontaneous
  Country: SZ (occurrence: None)
  Receive Date: 20121115
  Receipt Date: 20121115
  Transmission Date: 20130627
  Serious: Yes (Hospitalization)
  Sender: FDA-Public Use
  Company Number: 20120689

PATIENT
  Age: 53 Year
  Sex: Female

DRUGS (1)
  1. VENOFER [Suspect]
     Indication: DRUG USE FOR UNKNOWN INDICATION
     Dosage: 5 injections
     Route: 040

REACTIONS (3)
  - Vascular rupture [None]
  - Chemical injury [None]
  - Nerve injury [None]
